FAERS Safety Report 4854046-X (Version None)
Quarter: 2005Q4

REPORT INFORMATION
  Report Type: 
  Country: None (occurrence: None)
  Receive Date: 20051214
  Receipt Date: 20051005
  Transmission Date: 20060501
  Serious: Yes (Hospitalization)
  Sender: FDA-Public Use
  Company Number: US-MERCK-0510USA04531

PATIENT
  Age: 70 Year
  Sex: Female
  Weight: 94 kg

DRUGS (2)
  1. VIOXX [Suspect]
     Indication: ARTHRITIS
     Route: 048
     Dates: start: 20040201, end: 20040801
  2. PREVACID [Concomitant]
     Route: 065

REACTIONS (13)
  - ADVERSE EVENT [None]
  - ANAEMIA [None]
  - BACK PAIN [None]
  - CARDIOVASCULAR DISORDER [None]
  - CEREBROVASCULAR ACCIDENT [None]
  - CHEST PAIN [None]
  - CORONARY ARTERY DISEASE [None]
  - INCONTINENCE [None]
  - NEUROPATHY PERIPHERAL [None]
  - RENAL FAILURE [None]
  - SPONDYLITIS [None]
  - TRANSIENT ISCHAEMIC ATTACK [None]
  - URINARY TRACT INFECTION [None]
